FAERS Safety Report 4690951-5 (Version None)
Quarter: 2005Q2

REPORT INFORMATION
  Report Type: 
  Country: None (occurrence: None)
  Receive Date: 20050610
  Receipt Date: 20050606
  Transmission Date: 20051028
  Serious: Yes (Hospitalization)
  Sender: FDA-Public Use
  Company Number: ITWYE718806JUN05

PATIENT
  Age: 55 Year
  Sex: Female

DRUGS (24)
  1. RAPAMUNE [Suspect]
     Indication: PROPHYLAXIS AGAINST TRANSPLANT REJECTION
     Dosage: SEE IMAGE
     Route: 048
     Dates: start: 20050102, end: 20050102
  2. RAPAMUNE [Suspect]
     Indication: PROPHYLAXIS AGAINST TRANSPLANT REJECTION
     Dosage: SEE IMAGE
     Route: 048
     Dates: start: 20050103, end: 20050202
  3. RAPAMUNE [Suspect]
     Indication: PROPHYLAXIS AGAINST TRANSPLANT REJECTION
     Dosage: SEE IMAGE
     Route: 048
     Dates: start: 20050203, end: 20050203
  4. RAPAMUNE [Suspect]
     Indication: PROPHYLAXIS AGAINST TRANSPLANT REJECTION
     Dosage: SEE IMAGE
     Route: 048
     Dates: start: 20050204, end: 20050216
  5. RAPAMUNE [Suspect]
     Indication: PROPHYLAXIS AGAINST TRANSPLANT REJECTION
     Dosage: SEE IMAGE
     Route: 048
     Dates: start: 20050217, end: 20050323
  6. RAPAMUNE [Suspect]
     Indication: PROPHYLAXIS AGAINST TRANSPLANT REJECTION
     Dosage: SEE IMAGE
     Route: 048
     Dates: start: 20050324, end: 20050421
  7. RAPAMUNE [Suspect]
     Indication: PROPHYLAXIS AGAINST TRANSPLANT REJECTION
     Dosage: SEE IMAGE
     Route: 048
     Dates: start: 20050422, end: 20050422
  8. RAPAMUNE [Suspect]
     Indication: PROPHYLAXIS AGAINST TRANSPLANT REJECTION
     Dosage: SEE IMAGE
     Route: 048
     Dates: start: 20050423, end: 20050506
  9. RAPAMUNE [Suspect]
     Indication: PROPHYLAXIS AGAINST TRANSPLANT REJECTION
     Dosage: SEE IMAGE
     Route: 048
     Dates: start: 20050507, end: 20050606
  10. PREDNISOLONE [Concomitant]
  11. PREDNISOLONE [Concomitant]
  12. PREDNISOLONE [Concomitant]
  13. PREDNISOLONE [Concomitant]
  14. PREDNISOLONE [Concomitant]
  15. PREDNISOLONE [Concomitant]
  16. METHYLPREDNISOLONE [Concomitant]
  17. RANITIDINE [Concomitant]
  18. SULFAMETHOXAZOLE + TRIMETHOPRIM [Concomitant]
  19. LORAZEPAM [Concomitant]
  20. DOXAZOSIN (DOXAZOSIN) [Concomitant]
  21. GABAPENTIN [Concomitant]
  22. NIAPRAZINE (NIAPRAZINE) [Concomitant]
  23. CITALOPRAM HYDROBROMIDE [Concomitant]
  24. POTASSIUM CHLORIDE [Concomitant]

REACTIONS (1)
  - KIDNEY TRANSPLANT REJECTION [None]
